FAERS Safety Report 4663781-8 (Version None)
Quarter: 2005Q2

REPORT INFORMATION
  Report Type: 
  Country: None (occurrence: None)
  Receive Date: 20050516
  Receipt Date: 20050425
  Transmission Date: 20051028
  Serious: Yes (Death, Other)
  Sender: FDA-Public Use
  Company Number: US_0412109582

PATIENT
  Sex: Male
  Weight: 100 kg

DRUGS (17)
  1. ZYPREXA [Suspect]
     Dosage: 10 MG
     Dates: start: 20010801, end: 20020501
  2. PROTONIX [Concomitant]
  3. REMERON (MIRTAZAPINE ORIFARM) [Concomitant]
  4. DIOVAN HCT [Concomitant]
  5. EFFEXOR XR [Concomitant]
  6. OXYCODONE AND ACETAMINOPHEN [Concomitant]
  7. VICOPROFEN [Concomitant]
  8. CLEOCIN [Concomitant]
  9. CLONAZEPAM [Concomitant]
  10. ULTRACET [Concomitant]
  11. ACIPHEX [Concomitant]
  12. NEURONTIN (GABAPENTIN PFIZER) [Concomitant]
  13. METOCLOPRAMIDE [Concomitant]
  14. LEVAQUIN [Concomitant]
  15. DIVALPROEX SODIUM [Concomitant]
  16. MIRTAZAPINE [Concomitant]
  17. VENLAFAXINE HCL [Concomitant]

REACTIONS (5)
  - ABDOMINAL DISTENSION [None]
  - DIABETES MELLITUS INADEQUATE CONTROL [None]
  - HAEMATEMESIS [None]
  - PANCREATITIS [None]
  - WEIGHT INCREASED [None]
